FAERS Safety Report 19795698 (Version 2)
Quarter: 2021Q3

REPORT INFORMATION
  Report Type: Spontaneous
  Country: NL (occurrence: NL)
  Receive Date: 20210907
  Receipt Date: 20210924
  Transmission Date: 20211014
  Serious: Yes (Other)
  Sender: FDA-Public Use
  Company Number: NL-ACCORD-237544

PATIENT
  Age: 66 Year
  Sex: Male
  Weight: 74.8 kg

DRUGS (3)
  1. METHOTREXATE. [Suspect]
     Active Substance: METHOTREXATE
     Indication: RHEUMATOID ARTHRITIS
     Dosage: 2.5 MG, 6 PIECES 1 TIME PER WEEK
     Dates: start: 202008, end: 20210805
  2. COMIRNATY [Suspect]
     Active Substance: TOZINAMERAN
     Indication: COVID-19 IMMUNISATION
     Dosage: INJECTION SOLUTION 0.3 ML
     Dates: start: 20210610
  3. TAMSULOSIN/TAMSULOSIN HYDROCHLORIDE [Concomitant]
     Active Substance: TAMSULOSIN HYDROCHLORIDE
     Dosage: MGA 0.4 MG

REACTIONS (11)
  - Rheumatoid arthritis [Not Recovered/Not Resolved]
  - Malaise [Recovering/Resolving]
  - Fatigue [Recovering/Resolving]
  - Decreased appetite [Recovering/Resolving]
  - Myalgia [Not Recovered/Not Resolved]
  - Leukopenia [Not Recovered/Not Resolved]
  - Listless [Not Recovered/Not Resolved]
  - Headache [Recovering/Resolving]
  - Arthralgia [Not Recovered/Not Resolved]
  - Nausea [Not Recovered/Not Resolved]
  - Pyrexia [Not Recovered/Not Resolved]

NARRATIVE: CASE EVENT DATE: 20210614
